FAERS Safety Report 5930727-1 (Version None)
Quarter: 2008Q4

REPORT INFORMATION
  Report Type: 
  Country: None (occurrence: None)
  Receive Date: 20081027
  Receipt Date: 20081021
  Transmission Date: 20090506
  Serious: Yes (Hospitalization)
  Sender: FDA-Public Use
  Company Number: IT-TEVA-179125ISR

PATIENT
  Sex: Male

DRUGS (1)
  1. CLARITHROMYCIN [Suspect]

REACTIONS (2)
  - HAEMATOMA [None]
  - PANCYTOPENIA [None]
